FAERS Safety Report 6581345-6 (Version None)
Quarter: 2010Q1

REPORT INFORMATION
  Report Type: 
  Country: None (occurrence: None)
  Receive Date: 20100215
  Receipt Date: 20100202
  Transmission Date: 20100710
  Serious: Yes (Hospitalization)
  Sender: FDA-Public Use
  Company Number: US-JNJFOC-20100107506

PATIENT
  Age: 79 Year
  Sex: Female
  Weight: 80.74 kg

DRUGS (15)
  1. EXTRA STRENGTH TYLENOL [Suspect]
     Route: 048
  2. EXTRA STRENGTH TYLENOL [Suspect]
     Indication: PAIN
     Route: 048
  3. VIOKASE [Concomitant]
     Indication: PANCREATIC DISORDER
  4. NITROGLYCERIN [Concomitant]
     Indication: ANGINA PECTORIS
  5. DILANTIN [Concomitant]
     Indication: EPILEPSY
  6. PHENOBARBITAL TAB [Concomitant]
     Indication: EPILEPSY
  7. METOPROLOL TARTRATE [Concomitant]
     Indication: CORONARY ARTERY DISEASE
  8. LEVOTHYROXINE SODIUM [Concomitant]
     Indication: THYROID DISORDER
  9. LIPITOR [Concomitant]
  10. EDECRINE [Concomitant]
     Indication: DIURETIC THERAPY
  11. CETIRIZINE HCL [Concomitant]
     Indication: ALLERGY TO ARTHROPOD STING
  12. FLUTICASONE PROPIONATE [Concomitant]
     Indication: NASAL DECONGESTION THERAPY
     Route: 045
  13. FLUTICASONE PROPIONATE [Concomitant]
     Indication: MULTIPLE ALLERGIES
     Route: 045
  14. ALBUTEROL [Concomitant]
     Indication: MULTIPLE ALLERGIES
     Route: 055
  15. METAMUCIL [Concomitant]

REACTIONS (5)
  - DIARRHOEA [None]
  - HEADACHE [None]
  - PANCREATITIS [None]
  - PRODUCT QUALITY ISSUE [None]
  - VOMITING [None]
